FAERS Safety Report 8954346 (Version 2)
Quarter: 2013Q3

REPORT INFORMATION
  Report Type: Report from Study
  Country: JP (occurrence: JP)
  Receive Date: 20121207
  Receipt Date: 20130820
  Transmission Date: 20140515
  Serious: Yes (Other)
  Sender: FDA-Public Use
  Company Number: JP-VERTEX PHARMACEUTICALS INC.-2012-025758

PATIENT
  Age: 65 Year
  Sex: Male

DRUGS (5)
  1. VX-950 (TELAPREVIR) [Suspect]
     Indication: CHRONIC HEPATITIS C
     Dosage: 2250 MG, QD
     Route: 048
     Dates: start: 20120427, end: 20120719
  2. RIBAVIRIN [Suspect]
     Indication: CHRONIC HEPATITIS C
     Dosage: 600 MG, QD
     Route: 048
     Dates: start: 20120427, end: 20120814
  3. RIBAVIRIN [Suspect]
     Dosage: 600 MG, 800 MG, QID
     Route: 048
     Dates: start: 20120815, end: 20121011
  4. PEGINTERFERON ALFA-2B [Suspect]
     Indication: CHRONIC HEPATITIS C
     Dosage: 1.5 ?G/KG, QW
     Route: 058
     Dates: start: 20120427
  5. PEGINTERFERON ALFA-2B [Suspect]
     Dosage: 1.4 ?G/KG, QW
     Route: 058
     Dates: end: 20121009

REACTIONS (1)
  - Granulocyte count decreased [Recovered/Resolved]
